APPROVED DRUG PRODUCT: METFORMIN HYDROCHLORIDE
Active Ingredient: METFORMIN HYDROCHLORIDE
Strength: 500MG/5ML
Dosage Form/Route: SOLUTION;ORAL
Application: A219151 | Product #001 | TE Code: AB
Applicant: BIONPHARMA INC
Approved: Apr 14, 2025 | RLD: No | RS: No | Type: RX